FAERS Safety Report 8340554-6 (Version None)
Quarter: 2012Q2

REPORT INFORMATION
  Report Type: 
  Country: None (occurrence: None)
  Receive Date: 20120507
  Receipt Date: 20100119
  Transmission Date: 20120825
  Serious: No
  Sender: FDA-Public Use
  Company Number: US-TEVA-2009010089

PATIENT
  Age: 75 Year
  Sex: Male

DRUGS (3)
  1. TREANDA [Suspect]
     Indication: CHRONIC LYMPHOCYTIC LEUKAEMIA
     Route: 042
     Dates: start: 20081104
  2. TREANDA [Suspect]
     Route: 042
     Dates: end: 20090901
  3. RITUXAN [Concomitant]
     Indication: CHRONIC LYMPHOCYTIC LEUKAEMIA
     Dates: start: 20090401

REACTIONS (3)
  - INJECTION SITE PHLEBITIS [None]
  - VENOUS THROMBOSIS LIMB [None]
  - INJECTION SITE INFLAMMATION [None]
